FAERS Safety Report 6975088-4 (Version None)
Quarter: 2010Q3

REPORT INFORMATION
  Report Type: 
  Country: None (occurrence: None)
  Receive Date: 20100910
  Receipt Date: 20090126
  Transmission Date: 20110219
  Serious: No
  Sender: FDA-Public Use
  Company Number: US-WYE-H07909609

PATIENT
  Sex: Female
  Weight: 102.15 kg

DRUGS (5)
  1. PRISTIQ [Suspect]
     Indication: DEPRESSION
     Route: 048
     Dates: start: 20090123
  2. TRAZODONE HCL [Concomitant]
  3. ZANTAC [Concomitant]
  4. WELLBUTRIN [Concomitant]
  5. KLONOPIN [Concomitant]

REACTIONS (2)
  - DECREASED APPETITE [None]
  - PHARYNGEAL OEDEMA [None]
